FAERS Safety Report 4409842-X (Version None)
Quarter: 2004Q3

REPORT INFORMATION
  Report Type: 
  Country: None (occurrence: None)
  Receive Date: 20040728
  Receipt Date: 20030618
  Transmission Date: 20050211
  Serious: No
  Sender: FDA-Public Use
  Company Number: US-GLAXOSMITHKLINE-A0412958A

PATIENT
  Sex: Female

DRUGS (3)
  1. DYAZIDE [Suspect]
  2. BEXTRA [Suspect]
  3. COPAXONE [Suspect]

REACTIONS (2)
  - DRUG INTERACTION [None]
  - FLUID RETENTION [None]
